FAERS Safety Report 19455133 (Version 1)
Quarter: 2021Q2

REPORT INFORMATION
  Report Type: Report from Study
  Country: BR (occurrence: BR)
  Receive Date: 20210623
  Receipt Date: 20210623
  Transmission Date: 20210717
  Serious: Yes (Hospitalization, Other)
  Sender: FDA-Public Use
  Company Number: NVSC2021BR135814

PATIENT
  Sex: Male

DRUGS (1)
  1. ENTRESTO [Suspect]
     Active Substance: SACUBITRIL\VALSARTAN
     Indication: PRODUCT USED FOR UNKNOWN INDICATION
     Dosage: ABOUT 3 MONTHS AGO
     Route: 065

REACTIONS (5)
  - Fatigue [Not Recovered/Not Resolved]
  - Pulmonary oedema [Unknown]
  - Lung disorder [Unknown]
  - Pneumonia [Unknown]
  - Cough [Recovering/Resolving]
